FAERS Safety Report 13282277 (Version 1)
Quarter: 2017Q1

REPORT INFORMATION
  Report Type: Spontaneous
  Country: US (occurrence: US)
  Receive Date: 20170301
  Receipt Date: 20170301
  Transmission Date: 20170428
  Serious: No
  Sender: FDA-Public Use
  Company Number: US-INSYS THERAPEUTICS, INC-INS201412-000337

PATIENT
  Sex: Male
  Weight: 104.32 kg

DRUGS (5)
  1. OXYCONTIN [Concomitant]
     Active Substance: OXYCODONE HYDROCHLORIDE
  2. SUBSYS [Suspect]
     Active Substance: FENTANYL
     Indication: PAIN
     Route: 060
  3. OXYCODONE [Concomitant]
     Active Substance: OXYCODONE
  4. PHENERGAN [Concomitant]
     Active Substance: PROMETHAZINE HYDROCHLORIDE
     Indication: NAUSEA
  5. SUBSYS [Suspect]
     Active Substance: FENTANYL
     Route: 060

REACTIONS (2)
  - Product quality issue [Unknown]
  - Drug withdrawal syndrome [Unknown]
